FAERS Safety Report 8077427-2 (Version None)
Quarter: 2012Q1

REPORT INFORMATION
  Report Type: 
  Country: None (occurrence: None)
  Receive Date: 20120127
  Receipt Date: 20120124
  Transmission Date: 20120608
  Serious: No
  Sender: FDA-Public Use
  Company Number: PHHY2011IT103140

PATIENT
  Sex: Female

DRUGS (5)
  1. RAMIPRIL [Concomitant]
     Dosage: 2.5 MG, DAILY
     Dates: start: 20080101
  2. TASIGNA [Suspect]
     Indication: CHRONIC MYELOID LEUKAEMIA
     Dosage: 400 MG/ DAY
     Route: 048
     Dates: start: 20110503, end: 20110506
  3. LASIX [Concomitant]
     Dosage: 25 MG, DAILY
     Route: 048
     Dates: start: 20090101
  4. SPIRIVA [Concomitant]
     Dosage: 18 UG, DAILY
     Dates: start: 20100101
  5. ZOLOFT [Concomitant]
     Dosage: 50 MG/DAY
     Route: 048
     Dates: start: 20090101

REACTIONS (3)
  - CONFUSIONAL STATE [None]
  - MEMORY IMPAIRMENT [None]
  - ASTHENIA [None]
